FAERS Safety Report 16544061 (Version 1)
Quarter: 2019Q3

REPORT INFORMATION
  Report Type: Spontaneous
  Country: US (occurrence: US)
  Receive Date: 20190709
  Receipt Date: 20190709
  Transmission Date: 20191004
  Serious: Yes (Other)
  Sender: FDA-Public Use
  Company Number: US-ROCHE-2351449

PATIENT
  Sex: Female

DRUGS (1)
  1. ACTEMRA [Suspect]
     Active Substance: TOCILIZUMAB
     Indication: PRODUCT USED FOR UNKNOWN INDICATION
     Dosage: FORM STRENGTH: 162 MG /0.9 ML
     Route: 058
     Dates: start: 201612

REACTIONS (4)
  - Gastrointestinal haemorrhage [Unknown]
  - Blood cholesterol increased [Unknown]
  - Memory impairment [Unknown]
  - Abdominal distension [Unknown]
